FAERS Safety Report 6158899-7 (Version None)
Quarter: 2009Q2

REPORT INFORMATION
  Report Type: 
  Country: None (occurrence: None)
  Receive Date: 20090408
  Receipt Date: 20090326
  Transmission Date: 20091009
  Serious: Yes (Other)
  Sender: FDA-Public Use
  Company Number: 2009PV000028

PATIENT
  Age: 65 Year
  Sex: Female
  Weight: 54 kg

DRUGS (11)
  1. DEPOCYT [Suspect]
     Indication: CENTRAL NERVOUS SYSTEM LEUKAEMIA
     Dosage: 50 MG; X2; INTH
     Route: 039
     Dates: start: 20090129, end: 20090213
  2. DEXAMETHASONE [Concomitant]
  3. CYCLOSPORINE [Concomitant]
  4. PANTOPRAZOLE SODIUM [Concomitant]
  5. BISOPROLOL FUMARATE [Concomitant]
  6. AMLODIPINE [Concomitant]
  7. HYDROCHLOROTHIAZIDE [Concomitant]
  8. ACYCLOVIR [Concomitant]
  9. TRIMETHOPRIM-SULFAMETHOXAZOLE [Concomitant]
  10. DIFLUCAN [Concomitant]
  11. ONDANSETRON [Concomitant]

REACTIONS (4)
  - CONSTIPATION [None]
  - PERIPHERAL SENSORY NEUROPATHY [None]
  - RENAL FAILURE ACUTE [None]
  - URINARY RETENTION [None]
